FAERS Safety Report 18948425 (Version 3)
Quarter: 2021Q3

REPORT INFORMATION
  Report Type: Spontaneous
  Country: US (occurrence: US)
  Receive Date: 20210227
  Receipt Date: 20210721
  Transmission Date: 20211014
  Serious: No
  Sender: FDA-Public Use
  Company Number: NVSC2021US037270

PATIENT
  Sex: Female

DRUGS (1)
  1. ILARIS [Suspect]
     Active Substance: CANAKINUMAB
     Indication: PRODUCT USED FOR UNKNOWN INDICATION
     Dosage: 300 MG (EVERY 21 DAY)
     Route: 065

REACTIONS (5)
  - Product storage error [Unknown]
  - Illness [Unknown]
  - Drug ineffective [Unknown]
  - Adverse reaction [Unknown]
  - Incorrect dose administered [Unknown]
